FAERS Safety Report 12182336 (Version 1)
Quarter: 2016Q1

REPORT INFORMATION
  Report Type: Spontaneous
  Country: MX (occurrence: MX)
  Receive Date: 20160316
  Receipt Date: 20160316
  Transmission Date: 20160526
  Serious: Yes (Other)
  Sender: FDA-Public Use
  Company Number: MX-ROCHE-1723775

PATIENT
  Age: 54 Year
  Sex: Male

DRUGS (7)
  1. BEVACIZUMAB [Suspect]
     Active Substance: BEVACIZUMAB
     Indication: GLIOBLASTOMA
     Route: 042
  2. PREDNISONE. [Concomitant]
     Active Substance: PREDNISONE
     Dosage: SUSPENDED ON AN UNSPECIFIED DATE
     Route: 065
  3. BEVACIZUMAB [Suspect]
     Active Substance: BEVACIZUMAB
     Dosage: MAINTENANCE THERAPY
     Route: 042
  4. TEMOZOLOMIDE. [Concomitant]
     Active Substance: TEMOZOLOMIDE
     Dosage: DAYS 1-5 MAINTENANCE THERAPY, 1ST CYCLE
     Route: 065
  5. TEMOZOLOMIDE. [Concomitant]
     Active Substance: TEMOZOLOMIDE
     Dosage: ADJUVANT THERAPY FOR 6 WEEKS
     Route: 065
  6. TEMOZOLOMIDE. [Concomitant]
     Active Substance: TEMOZOLOMIDE
     Dosage: DAYS 1-5 MAINTENANCE THERAPY, LAST CYCLES
     Route: 065
  7. IRINOTECAN [Concomitant]
     Active Substance: IRINOTECAN
     Route: 065

REACTIONS (9)
  - Headache [Unknown]
  - Dizziness [Unknown]
  - Hypertension [Unknown]
  - General physical health deterioration [Not Recovered/Not Resolved]
  - Disease recurrence [Unknown]
  - Bradyphrenia [Unknown]
  - Gingival bleeding [Unknown]
  - Epistaxis [Unknown]
  - Paresis [Unknown]
